FAERS Safety Report 5829847-1 (Version None)
Quarter: 2008Q3

REPORT INFORMATION
  Report Type: 
  Country: None (occurrence: None)
  Receive Date: 20080729
  Receipt Date: 20080722
  Transmission Date: 20090109
  Serious: Yes (Hospitalization)
  Sender: FDA-Public Use
  Company Number: 2008BI018373

PATIENT
  Sex: Female

DRUGS (1)
  1. AVONEX [Suspect]
     Indication: DRUG USE FOR UNKNOWN INDICATION
     Dosage: ; IM
     Route: 030

REACTIONS (7)
  - ANKLE FRACTURE [None]
  - DIARRHOEA [None]
  - FALL [None]
  - OROPHARYNGEAL PAIN [None]
  - SINUS CONGESTION [None]
  - TIBIA FRACTURE [None]
  - VOMITING [None]
